FAERS Safety Report 18338833 (Version 1)
Quarter: 2020Q4

REPORT INFORMATION
  Report Type: Spontaneous
  Country: US (occurrence: US)
  Receive Date: 20201002
  Receipt Date: 20201002
  Transmission Date: 20210113
  Serious: No
  Sender: FDA-Public Use
  Company Number: US-SUNOVION-2020SUN002796

PATIENT
  Sex: Female

DRUGS (3)
  1. DEPAKOTE [Concomitant]
     Active Substance: DIVALPROEX SODIUM
     Dosage: 500 MG, HS
  2. LATUDA [Suspect]
     Active Substance: LURASIDONE HYDROCHLORIDE
     Dosage: UNK
     Route: 048
     Dates: start: 2020
  3. ABILIFY [Concomitant]
     Active Substance: ARIPIPRAZOLE
     Dosage: MAINTENANCE DOSE INJECTION, Q4WEEKS

REACTIONS (5)
  - Off label use [Unknown]
  - Confusional state [Unknown]
  - Panic reaction [Unknown]
  - Anxiety [Unknown]
  - Anger [Recovered/Resolved]
